FAERS Safety Report 6503947-5 (Version None)
Quarter: 2009Q4

REPORT INFORMATION
  Report Type: 
  Country: None (occurrence: None)
  Receive Date: 20091217
  Receipt Date: 20091207
  Transmission Date: 20100525
  Serious: Yes (Other)
  Sender: FDA-Public Use
  Company Number: US-PFIZER INC-2002073387

PATIENT
  Sex: Male
  Weight: 63.5 kg

DRUGS (4)
  1. ZITHROMAX [Suspect]
     Indication: BRONCHITIS
     Dosage: 500 MG DAILY
     Route: 048
     Dates: start: 20021227
  2. ZITHROMAX [Suspect]
     Dosage: 250 MG DAILY
     Route: 048
     Dates: end: 20021228
  3. BENADRYL [Suspect]
     Indication: HYPERSENSITIVITY
     Route: 048
     Dates: start: 20021229
  4. LACTOBACILLUS ACIDOPHILUS [Concomitant]
     Route: 065

REACTIONS (18)
  - ANORECTAL DISORDER [None]
  - DRUG HYPERSENSITIVITY [None]
  - EYE DISORDER [None]
  - EYE PAIN [None]
  - EYELID OEDEMA [None]
  - EYELID PTOSIS [None]
  - FEELING ABNORMAL [None]
  - FEELING COLD [None]
  - HYPERSENSITIVITY [None]
  - LACRIMATION INCREASED [None]
  - NAUSEA [None]
  - OROPHARYNGEAL PAIN [None]
  - PAIN [None]
  - RASH [None]
  - SKIN WRINKLING [None]
  - SWELLING FACE [None]
  - TINNITUS [None]
  - VISION BLURRED [None]
